FAERS Safety Report 11365668 (Version 2)
Quarter: 2015Q3

REPORT INFORMATION
  Report Type: Report from Study
  Country: AR (occurrence: AR)
  Receive Date: 20150811
  Receipt Date: 20150909
  Transmission Date: 20151125
  Serious: Yes (Other)
  Sender: FDA-Public Use
  Company Number: AR-ABBVIE-15K-007-1440649-00

PATIENT
  Age: 36 Year
  Sex: Female
  Weight: 56 kg

DRUGS (2)
  1. METHOTREXATE [Concomitant]
     Active Substance: METHOTREXATE
     Indication: PSORIATIC ARTHROPATHY
     Route: 048
     Dates: start: 2011
  2. HUMIRA [Suspect]
     Active Substance: ADALIMUMAB
     Indication: PSORIATIC ARTHROPATHY
     Route: 065
     Dates: start: 201407

REACTIONS (2)
  - Colon dysplasia [Unknown]
  - Colon adenoma [Unknown]
